FAERS Safety Report 7247148-4 (Version None)
Quarter: 2011Q1

REPORT INFORMATION
  Report Type: 
  Country: None (occurrence: None)
  Receive Date: 20110127
  Receipt Date: 20100924
  Transmission Date: 20110831
  Serious: No
  Sender: FDA-Public Use
  Company Number: US-BAUSCH-2010BL005422

PATIENT
  Age: 87 Year
  Sex: Female

DRUGS (4)
  1. SYNTHROID [Concomitant]
     Indication: HYPOTHYROIDISM
  2. ALAWAY [Suspect]
     Route: 047
     Dates: start: 20100912, end: 20100912
  3. CLARITIN                                /USA/ [Concomitant]
     Indication: HYPERSENSITIVITY
  4. ALAWAY [Suspect]
     Indication: EYE PRURITUS
     Route: 047
     Dates: start: 20100911, end: 20100911

REACTIONS (2)
  - FOREIGN BODY SENSATION IN EYES [None]
  - HEADACHE [None]
